FAERS Safety Report 7686224-9 (Version None)
Quarter: 2011Q3

REPORT INFORMATION
  Report Type: 
  Country: None (occurrence: None)
  Receive Date: 20110816
  Receipt Date: 20110802
  Transmission Date: 20111222
  Serious: Yes (Life-Threatening, Hospitalization, Other)
  Sender: FDA-Public Use
  Company Number: NZ-UCBSA-022133

PATIENT
  Sex: Female
  Weight: 70 kg

DRUGS (4)
  1. KEPPRA [Suspect]
     Indication: EPILEPSY
     Dates: start: 20101101
  2. LAMOVUDINE [Suspect]
     Indication: HEPATITIS C
     Route: 048
     Dates: end: 20101101
  3. PHENYTOIN [Suspect]
     Indication: EPILEPSY
     Route: 048
     Dates: start: 20080101, end: 20101101
  4. CARBAMAZEPINE [Suspect]

REACTIONS (1)
  - TOXIC EPIDERMAL NECROLYSIS [None]
